FAERS Safety Report 8160656-7 (Version None)
Quarter: 2012Q1

REPORT INFORMATION
  Report Type: 
  Country: None (occurrence: None)
  Receive Date: 20120223
  Receipt Date: 20120216
  Transmission Date: 20120608
  Serious: Yes (Death, Hospitalization)
  Sender: FDA-Public Use
  Company Number: JP-ROCHE-649428

PATIENT
  Sex: Female
  Weight: 45 kg

DRUGS (46)
  1. ACTEMRA [Suspect]
     Route: 041
     Dates: start: 20100125, end: 20100125
  2. ACTEMRA [Suspect]
     Route: 041
     Dates: start: 20100222, end: 20100222
  3. ACTEMRA [Suspect]
     Route: 041
     Dates: start: 20101220, end: 20101220
  4. PREDNISOLONE [Concomitant]
     Route: 048
     Dates: start: 20080918, end: 20081026
  5. PREDNISOLONE [Concomitant]
     Route: 048
  6. SOLU-CORTEF [Concomitant]
     Route: 042
     Dates: start: 20080717, end: 20080717
  7. SOLU-CORTEF [Concomitant]
     Route: 042
     Dates: start: 20080804, end: 20080804
  8. SOLU-CORTEF [Concomitant]
     Route: 042
     Dates: start: 20081229, end: 20081229
  9. ACTEMRA [Suspect]
     Route: 041
     Dates: start: 20080929, end: 20080929
  10. ACTEMRA [Suspect]
     Route: 041
     Dates: start: 20090601, end: 20090601
  11. ACTEMRA [Suspect]
     Route: 041
     Dates: start: 20091005, end: 20091005
  12. ACTEMRA [Suspect]
     Route: 041
     Dates: start: 20091201, end: 20091201
  13. SOLU-CORTEF [Concomitant]
     Route: 042
     Dates: start: 20081027, end: 20081027
  14. ACTEMRA [Suspect]
     Route: 041
     Dates: start: 20080804, end: 20080804
  15. ACTEMRA [Suspect]
     Route: 041
     Dates: start: 20080901, end: 20080901
  16. ACTEMRA [Suspect]
     Route: 041
     Dates: start: 20100426, end: 20100426
  17. PREDNISOLONE [Concomitant]
     Route: 048
     Dates: start: 20081027, end: 20081109
  18. ACTEMRA [Suspect]
     Route: 041
     Dates: start: 20090811, end: 20090811
  19. ACTEMRA [Suspect]
     Route: 041
     Dates: start: 20091111, end: 20091111
  20. ACTEMRA [Suspect]
     Route: 041
     Dates: start: 20100716, end: 20100716
  21. ACTEMRA [Suspect]
     Route: 041
     Dates: start: 20101025, end: 20101025
  22. SOLU-CORTEF [Concomitant]
     Route: 042
     Dates: start: 20080901, end: 20080901
  23. ACTEMRA [Suspect]
     Route: 041
     Dates: start: 20090119, end: 20090119
  24. ACTEMRA [Suspect]
     Route: 041
     Dates: start: 20090413, end: 20090413
  25. ACTEMRA [Suspect]
     Route: 041
     Dates: start: 20100621, end: 20100621
  26. ACTEMRA [Suspect]
     Route: 041
     Dates: start: 20100929, end: 20100929
  27. ACTEMRA [Suspect]
     Route: 041
     Dates: start: 20110214, end: 20110214
  28. SOLU-CORTEF [Concomitant]
     Route: 042
     Dates: start: 20081201, end: 20081201
  29. ACTEMRA [Suspect]
     Route: 041
     Dates: start: 20081027, end: 20081027
  30. ACTEMRA [Suspect]
     Route: 041
     Dates: start: 20081229, end: 20081229
  31. ACTEMRA [Suspect]
     Route: 041
     Dates: start: 20090629, end: 20090629
  32. ACTEMRA [Suspect]
     Route: 041
     Dates: start: 20100323, end: 20100323
  33. ACTEMRA [Suspect]
     Route: 041
     Dates: start: 20101129, end: 20101129
  34. LENDORMIN [Concomitant]
     Route: 048
  35. ACTEMRA [Suspect]
     Route: 041
     Dates: start: 20081201, end: 20081201
  36. ACTEMRA [Suspect]
     Route: 041
     Dates: start: 20090511, end: 20090511
  37. ACTEMRA [Suspect]
     Route: 041
     Dates: start: 20091228, end: 20091228
  38. ACTEMRA [Suspect]
     Route: 041
     Dates: start: 20110118, end: 20110118
  39. PREDNISOLONE [Concomitant]
     Dosage: FORM: PERORAL AGENT
     Route: 048
  40. SOLU-CORTEF [Concomitant]
     Route: 042
     Dates: start: 20080928, end: 20080928
  41. ACTEMRA [Suspect]
     Indication: RHEUMATOID ARTHRITIS
     Route: 041
     Dates: start: 20080707, end: 20080707
  42. ACTEMRA [Suspect]
     Route: 041
     Dates: start: 20090216, end: 20090216
  43. ACTEMRA [Suspect]
     Route: 041
     Dates: start: 20090316, end: 20090316
  44. ACTEMRA [Suspect]
     Route: 041
     Dates: start: 20090907, end: 20090907
  45. ACTEMRA [Suspect]
     Route: 041
     Dates: start: 20100524, end: 20100524
  46. ACTEMRA [Suspect]
     Route: 041
     Dates: start: 20100813, end: 20100813

REACTIONS (2)
  - CANDIDIASIS [None]
  - DEATH [None]
